FAERS Safety Report 14187744 (Version 1)
Quarter: 2017Q4

REPORT INFORMATION
  Report Type: Spontaneous
  Country: US (occurrence: US)
  Receive Date: 20171114
  Receipt Date: 20171114
  Transmission Date: 20180321
  Serious: No
  Sender: FDA-Public Use
  Company Number: US-BAUSCH-BL-2017-007481

PATIENT
  Age: 16 Year
  Sex: Male

DRUGS (1)
  1. RETIN-A MICRO [Suspect]
     Active Substance: TRETINOIN
     Indication: PRODUCT USED FOR UNKNOWN INDICATION
     Dosage: IN THE MORNING
     Route: 061
     Dates: start: 20170308

REACTIONS (2)
  - Rash macular [Unknown]
  - Application site pain [Unknown]

NARRATIVE: CASE EVENT DATE: 20170315
